FAERS Safety Report 9515691 (Version 1)
Quarter: 2013Q3

REPORT INFORMATION
  Report Type: Spontaneous
  Country: JP (occurrence: JP)
  Receive Date: 20130911
  Receipt Date: 20130911
  Transmission Date: 20140515
  Serious: Yes (Other)
  Sender: FDA-Public Use
  Company Number: JP-ROCHE-1272028

PATIENT
  Age: 8 Year
  Sex: Female

DRUGS (7)
  1. RITUXIMAB [Suspect]
     Indication: DIFFUSE LARGE B-CELL LYMPHOMA
     Route: 065
  2. CYCLOPHOSPHAMIDE [Suspect]
     Indication: DIFFUSE LARGE B-CELL LYMPHOMA
     Route: 065
  3. CYCLOPHOSPHAMIDE [Suspect]
     Dosage: DOSE REDUCED
     Route: 065
  4. VINBLASTINE [Suspect]
     Indication: DIFFUSE LARGE B-CELL LYMPHOMA
     Route: 065
  5. PREDNISOLONE [Suspect]
     Indication: DIFFUSE LARGE B-CELL LYMPHOMA
     Route: 065
  6. PIRARUBICIN [Suspect]
     Indication: DIFFUSE LARGE B-CELL LYMPHOMA
     Route: 065
  7. PIRARUBICIN [Suspect]
     Dosage: DOSE REDUCED
     Route: 065

REACTIONS (5)
  - Neutropenia [Unknown]
  - Oral mucosa erosion [Unknown]
  - Abdominal pain [Unknown]
  - Bacterial infection [Unknown]
  - Pyrexia [Unknown]
